FAERS Safety Report 20745898 (Version 1)
Quarter: 2022Q2

REPORT INFORMATION
  Report Type: Spontaneous
  Country: US (occurrence: None)
  Receive Date: 20220424
  Receipt Date: 20220424
  Transmission Date: 20220721
  Serious: No
  Sender: FDA-Public Use
  Company Number: None

PATIENT
  Age: 37 Year
  Sex: Female
  Weight: 63 kg

DRUGS (1)
  1. CHANTIX [Suspect]
     Active Substance: VARENICLINE TARTRATE
     Indication: Smoking cessation therapy
     Dosage: OTHER QUANTITY : 56 TABLET(S);?FREQUENCY : TWICE A DAY;?
     Route: 048
     Dates: start: 2021, end: 20210620

REACTIONS (8)
  - Nausea [None]
  - Vomiting [None]
  - Loss of personal independence in daily activities [None]
  - Urticaria [None]
  - Scar [None]
  - Blister [None]
  - Autoimmune disorder [None]
  - Therapy interrupted [None]

NARRATIVE: CASE EVENT DATE: 20210401
